FAERS Safety Report 9554167 (Version 1)
Quarter: 2013Q3

REPORT INFORMATION
  Report Type: Spontaneous
  Country: US (occurrence: None)
  Receive Date: 20130916
  Receipt Date: 20130916
  Transmission Date: 20140515
  Serious: Yes (Hospitalization, Other)
  Sender: FDA-Public Use
  Company Number: 2010AP001335

PATIENT
  Age: 25 Year
  Sex: Female

DRUGS (2)
  1. CIPROFLOXACIN [Suspect]
     Indication: PYELONEPHRITIS
     Dosage: 500 MG, BID, PO
     Route: 048
  2. IBUPROFEN [Concomitant]

REACTIONS (3)
  - Anaphylactoid reaction [None]
  - Pulmonary oedema [None]
  - Angioedema [None]
